FAERS Safety Report 8502229-X (Version None)
Quarter: 2012Q3

REPORT INFORMATION
  Report Type: 
  Country: None (occurrence: None)
  Receive Date: 20120711
  Receipt Date: 20120705
  Transmission Date: 20120928
  Serious: Yes (Other)
  Sender: FDA-Public Use
  Company Number: PHHY2012IT058750

PATIENT
  Sex: Female

DRUGS (5)
  1. ALENDRONATE SODIUM [Suspect]
     Dosage: 70 MG, WEEKLY
     Route: 048
     Dates: start: 20120508, end: 20120515
  2. LASIX [Concomitant]
     Dates: start: 20111201
  3. BISOPROLOLO SANDOZ [Concomitant]
     Dates: start: 20120221
  4. ASPIRIN [Concomitant]
     Dates: start: 20120301
  5. LANSOPRAZOLO EG [Concomitant]
     Dates: start: 20111201

REACTIONS (1)
  - IRIDOCYCLITIS [None]
